FAERS Safety Report 21437780 (Version 1)
Quarter: 2022Q4

REPORT INFORMATION
  Report Type: Report from Study
  Country: US (occurrence: US)
  Receive Date: 20221011
  Receipt Date: 20221011
  Transmission Date: 20230113
  Serious: Yes (Other)
  Sender: FDA-Public Use
  Company Number: US-NOVARTISTESTPH-NVSC2022US226882

PATIENT
  Sex: Female

DRUGS (2)
  1. TASIGNA [Suspect]
     Active Substance: NILOTINIB
     Indication: Product used for unknown indication
     Dosage: UNK
     Route: 048
  2. TASIGNA [Suspect]
     Active Substance: NILOTINIB
     Dosage: UNK (REDUCED DOSE TO 2 PILLS IN AM AND 1 PILL IN PM)
     Route: 048

REACTIONS (4)
  - Renal impairment [Unknown]
  - Abdominal discomfort [Unknown]
  - Rash [Unknown]
  - Nausea [Unknown]
